FAERS Safety Report 9113080 (Version 1)
Quarter: 2013Q1

REPORT INFORMATION
  Report Type: Spontaneous
  Country: US (occurrence: US)
  Receive Date: 20130207
  Receipt Date: 20130207
  Transmission Date: 20140127
  Serious: Yes (Death)
  Sender: FDA-Public Use
  Company Number: US-FOUGERA-2013FO000027

PATIENT
  Sex: Male

DRUGS (2)
  1. HYDROCORTISONE [Suspect]
     Indication: RASH
     Route: 061
     Dates: start: 201109, end: 2011
  2. BACITRACIN\NEOMYCIN\NEOMYCIN SULFATE\POLYMYXIN B\POLYMYXIN B SULFATE [Suspect]
     Indication: RASH
     Route: 061
     Dates: start: 201109, end: 2011

REACTIONS (2)
  - General physical health deterioration [Fatal]
  - Cardiac disorder [Fatal]
